FAERS Safety Report 4401480-8 (Version None)
Quarter: 2004Q3

REPORT INFORMATION
  Report Type: 
  Country: None (occurrence: None)
  Receive Date: 20040907
  Receipt Date: 20040526
  Transmission Date: 20050211
  Serious: Yes (Other)
  Sender: FDA-Public Use
  Company Number: US-BRISTOL-MYERS SQUIBB COMPANY-12597001

PATIENT
  Age: 74 Year
  Sex: Male
  Weight: 74 kg

DRUGS (6)
  1. COUMADIN [Suspect]
     Indication: COAGULOPATHY
     Dosage: 2.5 MG X 5 DAYS + 5 MG MON/FRI.  DRUG REPORTED WITH END DATE=3/30 AND WAS ^WITHHELD^ 3/31+4/1
     Route: 048
     Dates: start: 19990101
  2. PROPAFENONE HYDROCHLORIDE [Interacting]
     Indication: ATRIAL FIBRILLATION
     Dosage: 8/29/02-3/7/04 150MG TID;3/8-3/28 225MG,AM+PM+150MG IN AFTN;3/26VS3/29-3/31 300MG TID;4/1 150MGTID
     Route: 048
     Dates: start: 20020829
  3. LANOXIN [Concomitant]
  4. MIRAPEX [Concomitant]
  5. TOPROL-XL [Concomitant]
  6. PROSCAR [Concomitant]

REACTIONS (3)
  - ATRIAL FIBRILLATION [None]
  - DRUG INTERACTION [None]
  - INTERNATIONAL NORMALISED RATIO INCREASED [None]
